FAERS Safety Report 20024323 (Version 1)
Quarter: 2021Q4

REPORT INFORMATION
  Report Type: Spontaneous
  Country: CN (occurrence: CN)
  Receive Date: 20211102
  Receipt Date: 20211102
  Transmission Date: 20220303
  Serious: Yes (Hospitalization, Other)
  Sender: FDA-Public Use
  Company Number: CN-GLAXOSMITHKLINE-CNCH2021APC077357

PATIENT
  Age: 76 Year
  Sex: Male
  Weight: 63 kg

DRUGS (2)
  1. IBUPROFEN [Suspect]
     Active Substance: IBUPROFEN
     Indication: Analgesic therapy
     Dosage: 0.3 GRAM, BID
     Route: 048
     Dates: start: 20210925, end: 20210927
  2. IBUPROFEN [Suspect]
     Active Substance: IBUPROFEN
     Indication: Dizziness

REACTIONS (7)
  - Upper gastrointestinal haemorrhage [Recovered/Resolved]
  - Melaena [Recovering/Resolving]
  - Dyschezia [Recovering/Resolving]
  - Abnormal faeces [Recovering/Resolving]
  - Faeces discoloured [Recovering/Resolving]
  - Diarrhoea [Recovering/Resolving]
  - Product use in unapproved indication [Recovering/Resolving]

NARRATIVE: CASE EVENT DATE: 20210925
